FAERS Safety Report 26059581 (Version 1)
Quarter: 2025Q4

REPORT INFORMATION
  Report Type: Spontaneous
  Country: EU (occurrence: EU)
  Receive Date: 20251118
  Receipt Date: 20251118
  Transmission Date: 20260117
  Serious: Yes (Hospitalization)
  Sender: MERCK SHARP & DOHME LLC
  Company Number: None

PATIENT
  Age: 78 Year
  Sex: Male
  Weight: 76 kg

DRUGS (8)
  1. KEYTRUDA [Suspect]
     Active Substance: PEMBROLIZUMAB
     Indication: Bladder transitional cell carcinoma
     Route: 042
     Dates: start: 20251009
  2. BACTRIM [Suspect]
     Active Substance: SULFAMETHOXAZOLE\TRIMETHOPRIM
     Indication: Urinary tract infection
     Route: 048
     Dates: start: 20251022, end: 20251028
  3. TELMISARTAN [Concomitant]
     Active Substance: TELMISARTAN
     Indication: Hypertension
     Route: 048
     Dates: end: 20251029
  4. TELMISARTAN [Concomitant]
     Active Substance: TELMISARTAN
     Indication: Hypertension
     Route: 048
     Dates: start: 20251103
  5. PADCEV [Concomitant]
     Active Substance: ENFORTUMAB VEDOTIN-EJFV
     Indication: Bladder transitional cell carcinoma
     Dosage: J8
     Route: 042
     Dates: start: 20251015, end: 20251015
  6. PADCEV [Concomitant]
     Active Substance: ENFORTUMAB VEDOTIN-EJFV
     Indication: Bladder transitional cell carcinoma
     Dosage: D1
     Route: 042
     Dates: start: 20251009, end: 20251009
  7. INDAPAMIDE [Concomitant]
     Active Substance: INDAPAMIDE
     Indication: Hypertension
     Route: 048
     Dates: end: 20251029
  8. INDAPAMIDE [Concomitant]
     Active Substance: INDAPAMIDE
     Indication: Hypertension
     Route: 048
     Dates: start: 20251103

REACTIONS (1)
  - Acute kidney injury [Recovered/Resolved]

NARRATIVE: CASE EVENT DATE: 20251029
